FAERS Safety Report 18472247 (Version 3)
Quarter: 2020Q4

REPORT INFORMATION
  Report Type: Spontaneous
  Country: DE (occurrence: DE)
  Receive Date: 20201106
  Receipt Date: 20201207
  Transmission Date: 20210114
  Serious: Yes (Life-Threatening, Hospitalization, Other)
  Sender: FDA-Public Use
  Company Number: DE-ASTRAZENECA-2020SF43339

PATIENT
  Age: 76 Year
  Sex: Male

DRUGS (3)
  1. LIDOCAINE. [Suspect]
     Active Substance: LIDOCAINE
     Indication: PAIN
     Route: 042
  2. METFORMIN [Suspect]
     Active Substance: METFORMIN HYDROCHLORIDE
     Indication: TYPE 2 DIABETES MELLITUS
     Route: 065
  3. DAPAGLIFLOZIN. [Suspect]
     Active Substance: DAPAGLIFLOZIN
     Indication: TYPE 2 DIABETES MELLITUS
     Route: 048

REACTIONS (9)
  - Anaphylactic shock [Unknown]
  - Ventricular tachycardia [Recovered/Resolved]
  - Toxicity to various agents [Unknown]
  - Off label use [Unknown]
  - Haemodynamic instability [Recovered/Resolved]
  - Shock [Unknown]
  - Intentional product use issue [Unknown]
  - Lactic acidosis [Unknown]
  - Euglycaemic diabetic ketoacidosis [Unknown]
